FAERS Safety Report 24442171 (Version 5)
Quarter: 2025Q4

REPORT INFORMATION
  Report Type: Report from Study
  Country: CA (occurrence: CA)
  Receive Date: 20241016
  Receipt Date: 20251218
  Transmission Date: 20260118
  Serious: Yes (Hospitalization, Other)
  Sender: CELLTRION
  Company Number: CA-CELLTRION INC.-2024CA006751

PATIENT

DRUGS (3)
  1. ADALIMUMAB-AATY [Suspect]
     Active Substance: ADALIMUMAB-AATY
     Indication: Rheumatoid arthritis
     Dosage: 40 MG, 2 WEEKS
     Route: 058
     Dates: start: 20230506
  2. ADALIMUMAB-AATY [Suspect]
     Active Substance: ADALIMUMAB-AATY
     Dosage: 40 MG, 2 WEEKS
     Route: 058
  3. ADALIMUMAB-AATY [Suspect]
     Active Substance: ADALIMUMAB-AATY
     Dosage: MAINTENANCE - 40 MG - EVERY 14 DAYS
     Route: 058
     Dates: start: 20230506, end: 20250721

REACTIONS (5)
  - Diabetes mellitus [Recovered/Resolved]
  - Pneumonia [Recovered/Resolved]
  - Product distribution issue [Recovered/Resolved]
  - Therapy interrupted [Recovered/Resolved]
  - Intentional dose omission [Recovered/Resolved]
